FAERS Safety Report 23358188 (Version 1)
Quarter: 2023Q4

REPORT INFORMATION
  Report Type: Spontaneous
  Country: US (occurrence: None)
  Receive Date: 20231230
  Receipt Date: 20231230
  Transmission Date: 20240109
  Serious: No
  Sender: FDA-Public Use
  Company Number: None

PATIENT
  Sex: Female

DRUGS (1)
  1. TALTZ [Suspect]
     Active Substance: IXEKIZUMAB
     Indication: Psoriatic arthropathy
     Dosage: OTHER FREQUENCY : Q 4WKS;?
     Route: 058
     Dates: start: 202212, end: 202312

REACTIONS (3)
  - Drug ineffective [None]
  - Arthritis [None]
  - Condition aggravated [None]
